FAERS Safety Report 8317347 (Version 3)
Quarter: 2021Q1

REPORT INFORMATION
  Report Type: Other
  Country: US (occurrence: US)
  Receive Date: 20111230
  Receipt Date: 20210317
  Transmission Date: 20210420
  Serious: Yes (Other)
  Sender: FDA-Public Use
  Company Number: US-ROCHE-720968

PATIENT

DRUGS (14)
  1. VINCRISTINE [Suspect]
     Active Substance: VINCRISTINE
     Indication: DIFFUSE LARGE B-CELL LYMPHOMA
     Route: 065
  2. VINCRISTINE [Suspect]
     Active Substance: VINCRISTINE
     Route: 065
  3. PREDNISOLONE. [Suspect]
     Active Substance: PREDNISOLONE
     Dosage: ON DAYS 1 THROUGH 5
     Route: 065
  4. LENALIDOMIDE [Suspect]
     Active Substance: LENALIDOMIDE
     Dosage: PHASE II
     Route: 048
  5. RITUXIMAB. [Suspect]
     Active Substance: RITUXIMAB
     Indication: DIFFUSE LARGE B-CELL LYMPHOMA
     Dosage: ON DAY 1 OF 21 DAYS CYCLE. PHASE I.
     Route: 042
  6. RITUXIMAB. [Suspect]
     Active Substance: RITUXIMAB
     Dosage: PHASE II.
     Route: 042
  7. CYCLOPHOSPHAMIDE. [Suspect]
     Active Substance: CYCLOPHOSPHAMIDE
     Indication: DIFFUSE LARGE B-CELL LYMPHOMA
     Dosage: ON DAY 1 OF 21 DAYS CYCLE. PHASE I
     Route: 065
  8. CYCLOPHOSPHAMIDE. [Suspect]
     Active Substance: CYCLOPHOSPHAMIDE
     Dosage: PHASE II
     Route: 065
  9. DOXORUBICIN [Suspect]
     Active Substance: DOXORUBICIN
     Indication: DIFFUSE LARGE B-CELL LYMPHOMA
     Dosage: DAY 1
     Route: 065
  10. DOXORUBICIN [Suspect]
     Active Substance: DOXORUBICIN
     Dosage: DAY 1
     Route: 065
  11. PREDNISOLONE. [Suspect]
     Active Substance: PREDNISOLONE
     Indication: DIFFUSE LARGE B-CELL LYMPHOMA
     Route: 065
  12. LENALIDOMIDE [Suspect]
     Active Substance: LENALIDOMIDE
     Indication: DIFFUSE LARGE B-CELL LYMPHOMA
     Route: 048
  13. PEGFILGRASTIM [Concomitant]
     Active Substance: PEGFILGRASTIM
     Dosage: DAZ 2
     Route: 058
  14. ASPIRIN. [Concomitant]
     Active Substance: ASPIRIN
     Indication: PROPHYLAXIS

REACTIONS (28)
  - Thrombocytopenia [Unknown]
  - Vomiting [Unknown]
  - Blood potassium decreased [Unknown]
  - Nausea [Unknown]
  - Sepsis [Unknown]
  - Thrombosis [Unknown]
  - Pneumonia [Unknown]
  - White blood cell count decreased [Unknown]
  - Vascular access complication [Unknown]
  - Lymphocyte count decreased [Unknown]
  - Stomatitis [Unknown]
  - Anaemia [Unknown]
  - Febrile neutropenia [Unknown]
  - Fatigue [Unknown]
  - Blood sodium decreased [Unknown]
  - Upper respiratory tract infection [Unknown]
  - Dyspnoea [Unknown]
  - Intra-abdominal haemorrhage [Unknown]
  - Pneumonitis [Unknown]
  - Neutropenia [Unknown]
  - Neuropathy peripheral [Recovering/Resolving]
  - Dehydration [Unknown]
  - Skin infection [Unknown]
  - Left ventricular dysfunction [Unknown]
  - Urinary tract infection [Unknown]
  - Laryngeal pain [Unknown]
  - Blood albumin decreased [Unknown]
  - Weight decreased [Unknown]
